FAERS Safety Report 24133810 (Version 1)
Quarter: 2024Q3

REPORT INFORMATION
  Report Type: Spontaneous
  Country: US (occurrence: US)
  Receive Date: 20240724
  Receipt Date: 20240724
  Transmission Date: 20241016
  Serious: No
  Sender: MYLAN
  Company Number: US-MYLANLABS-2024M1066463

PATIENT
  Sex: Female

DRUGS (2)
  1. GABAPENTIN [Interacting]
     Active Substance: GABAPENTIN
     Indication: Back pain
     Dosage: UNK
     Route: 065
  2. TYMLOS [Interacting]
     Active Substance: ABALOPARATIDE
     Indication: Osteoporosis postmenopausal
     Dosage: UNK
     Route: 058
     Dates: start: 202405

REACTIONS (5)
  - Flushing [Unknown]
  - Urticaria [Unknown]
  - Back pain [Unknown]
  - Drug interaction [Unknown]
  - Off label use [Unknown]
